FAERS Safety Report 5906158-7 (Version None)
Quarter: 2008Q4

REPORT INFORMATION
  Report Type: 
  Country: None (occurrence: None)
  Receive Date: 20081002
  Receipt Date: 20080926
  Transmission Date: 20090506
  Serious: Yes (Life-Threatening, Hospitalization, Other)
  Sender: FDA-Public Use
  Company Number: FR-WYE-G01385108

PATIENT
  Sex: Male
  Weight: 69 kg

DRUGS (4)
  1. TORISEL [Suspect]
     Indication: RENAL CANCER METASTATIC
     Dosage: 25 MG
     Route: 042
     Dates: start: 20080205, end: 20080205
  2. TORISEL [Suspect]
     Dosage: ABOUT 20 MG
     Route: 042
     Dates: start: 20080201, end: 20080201
  3. TORISEL [Suspect]
     Dosage: 25 MG
     Route: 042
     Dates: start: 20080320, end: 20080320
  4. ANALGESICS [Concomitant]
     Dosage: UNKNOWN

REACTIONS (7)
  - CONDITION AGGRAVATED [None]
  - DIABETIC HYPEROSMOLAR COMA [None]
  - LYMPHOEDEMA [None]
  - MOBILITY DECREASED [None]
  - PROTHROMBIN TIME PROLONGED [None]
  - THROMBOCYTOPENIA [None]
  - TYPE 1 DIABETES MELLITUS [None]
